FAERS Safety Report 5786429-8 (Version None)
Quarter: 2008Q2

REPORT INFORMATION
  Report Type: 
  Country: None (occurrence: None)
  Receive Date: 20080624
  Receipt Date: 20070806
  Transmission Date: 20081010
  Serious: No
  Sender: FDA-Public Use
  Company Number: US-ASTRAZENECA-2007UW18919

PATIENT
  Age: 84 Year
  Sex: Male
  Weight: 70.8 kg

DRUGS (4)
  1. PULMICORT RESPULES [Suspect]
     Indication: ANTIINFLAMMATORY THERAPY
     Route: 055
     Dates: start: 20020101, end: 20070401
  2. PULMICORT RESPULES [Suspect]
     Indication: CHRONIC OBSTRUCTIVE PULMONARY DISEASE
     Route: 055
     Dates: start: 20020101, end: 20070401
  3. PULMICORT RESPULES [Suspect]
     Dosage: TWO 0.250 MG DAILY
     Route: 055
     Dates: start: 20070401
  4. PULMICORT RESPULES [Suspect]
     Dosage: TWO 0.250 MG DAILY
     Route: 055
     Dates: start: 20070401

REACTIONS (1)
  - DRUG INEFFECTIVE [None]
